FAERS Safety Report 10269877 (Version 1)
Quarter: 2014Q2

REPORT INFORMATION
  Report Type: Spontaneous
  Country: US (occurrence: None)
  Receive Date: 20140627
  Receipt Date: 20140627
  Transmission Date: 20141212
  Serious: Yes (Other)
  Sender: FDA-Public Use
  Company Number: None

PATIENT
  Age: 34 Year
  Sex: Female
  Weight: 70.31 kg

DRUGS (2)
  1. TRIAMCINOLONE [Suspect]
     Indication: SKIN DISORDER
     Dates: start: 20140429
  2. BETAMETHASONE [Suspect]

REACTIONS (1)
  - Menorrhagia [None]
